FAERS Safety Report 8088695-5 (Version None)
Quarter: 2012Q1

REPORT INFORMATION
  Report Type: 
  Country: None (occurrence: None)
  Receive Date: 20120128
  Receipt Date: 20110607
  Transmission Date: 20120608
  Serious: No
  Sender: FDA-Public Use
  Company Number: US-ABBOTT-11P-163-0730742-00

PATIENT
  Sex: Female

DRUGS (4)
  1. HUMIRA [Suspect]
     Indication: ANKYLOSING SPONDYLITIS
     Route: 058
     Dates: start: 20110520
  2. INDOMETHACIN [Concomitant]
     Indication: OSTEOARTHRITIS
     Route: 048
  3. INDOMETHACIN [Concomitant]
     Indication: ANKYLOSING SPONDYLITIS
  4. MULTI-VITAMIN [Concomitant]
     Indication: VITAMIN SUPPLEMENTATION
     Route: 048

REACTIONS (2)
  - ARTHRALGIA [None]
  - BACK PAIN [None]
